FAERS Safety Report 7528511-0 (Version None)
Quarter: 2011Q2

REPORT INFORMATION
  Report Type: 
  Country: None (occurrence: None)
  Receive Date: 20110607
  Receipt Date: 20100804
  Transmission Date: 20111010
  Serious: No
  Sender: FDA-Public Use
  Company Number: US-ASTRAZENECA-2010SE37321

PATIENT
  Sex: Female

DRUGS (2)
  1. PRILOSEC OTC [Suspect]
     Indication: DYSPEPSIA
     Dosage: UNK DOSE, UNK FREQ FOR 212 DAYS
     Route: 048
     Dates: start: 20100101, end: 20100801
  2. ANTIHYPERTENSIVES [Concomitant]
     Dosage: UNKNOWN

REACTIONS (2)
  - GASTROOESOPHAGEAL REFLUX DISEASE [None]
  - DRUG INEFFECTIVE [None]
